FAERS Safety Report 14929677 (Version 1)
Quarter: 2018Q2

REPORT INFORMATION
  Report Type: Spontaneous
  Country: US (occurrence: US)
  Receive Date: 20180504
  Receipt Date: 20180504
  Transmission Date: 20180711
  Serious: No
  Sender: FDA-Public Use
  Company Number: None

PATIENT
  Age: 35 Year
  Sex: Male
  Weight: 123.75 kg

DRUGS (2)
  1. TESTOSTERONE GEL [Suspect]
     Active Substance: TESTOSTERONE
     Indication: HYPOGONADISM
     Dosage: 1%, 5  GRAMS?          QUANTITY:30 CREAM/GEL;?
     Route: 061
     Dates: start: 20170906
  2. TESTOSTERONE GEL [Suspect]
     Active Substance: TESTOSTERONE
     Indication: HYPOGONADISM
     Dosage: 1%, 5 GRAMS GGRAM(S)?          QUANTITY:30 CREAM/GEL;?
     Route: 061
     Dates: start: 20170906

REACTIONS (4)
  - Product quality issue [None]
  - Product packaging issue [None]
  - Drug ineffective [None]
  - Suspected counterfeit product [None]

NARRATIVE: CASE EVENT DATE: 20180501
